FAERS Safety Report 7206284-9 (Version None)
Quarter: 2011Q1

REPORT INFORMATION
  Report Type: 
  Country: None (occurrence: None)
  Receive Date: 20110103
  Receipt Date: 20101222
  Transmission Date: 20110831
  Serious: Yes (Other)
  Sender: FDA-Public Use
  Company Number: PHHY2010JP88044

PATIENT
  Age: 55 Year
  Sex: Female

DRUGS (4)
  1. CYCLOSPORINE [Suspect]
     Indication: POLYMYOSITIS
     Dosage: UNK
     Dates: start: 20100101, end: 20100101
  2. METHOTREXATE [Concomitant]
     Indication: POLYMYOSITIS
     Dosage: 6 MG, UNK
  3. AZATHIOPRINE [Concomitant]
     Indication: POLYMYOSITIS
     Dosage: UNK
     Dates: start: 20091201, end: 20091201
  4. PREDNISOLONE [Concomitant]
     Indication: POLYMYOSITIS
     Dosage: 48 MG
     Dates: start: 20090901

REACTIONS (2)
  - THROMBOTIC THROMBOCYTOPENIC PURPURA [None]
  - PANCREATITIS ACUTE [None]
